FAERS Safety Report 9146447 (Version 1)
Quarter: 2013Q1

REPORT INFORMATION
  Report Type: Spontaneous
  Country: SE (occurrence: SE)
  Receive Date: 20130307
  Receipt Date: 20130307
  Transmission Date: 20140127
  Serious: Yes (Other)
  Sender: FDA-Public Use
  Company Number: SE-PFIZER INC-2012244626

PATIENT
  Sex: Female
  Weight: 2.93 kg

DRUGS (6)
  1. LYRICA [Suspect]
     Indication: ANXIETY
     Dosage: 75 MG, DAILY
     Route: 064
     Dates: start: 20110202, end: 20121110
  2. LYRICA [Suspect]
     Indication: DEPRESSION
  3. VENLAFAXINE HYDROCHLORIDE [Suspect]
     Indication: ANXIETY
     Dosage: 150 MG, 1X/DAY
     Route: 064
  4. VENLAFAXINE HYDROCHLORIDE [Suspect]
     Indication: DEPRESSION
  5. IMOVANE [Suspect]
     Indication: SLEEP DISORDER
     Dosage: 1 UNK, 1X/DAY
     Route: 064
  6. PROPAVAN [Suspect]
     Indication: SLEEP DISORDER
     Dosage: UNK
     Route: 064

REACTIONS (2)
  - Maternal exposure during pregnancy [Unknown]
  - Respiratory disorder neonatal [Unknown]
